FAERS Safety Report 9269001 (Version 2)
Quarter: 2013Q2

REPORT INFORMATION
  Report Type: Spontaneous
  Country: US (occurrence: US)
  Receive Date: 20130503
  Receipt Date: 20130523
  Transmission Date: 20140414
  Serious: Yes (Other)
  Sender: FDA-Public Use
  Company Number: US-BIOGENIDEC-2013BI039790

PATIENT
  Age: 47 Year
  Sex: Female
  Weight: 90 kg

DRUGS (7)
  1. AVONEX [Suspect]
     Indication: MULTIPLE SCLEROSIS
     Route: 030
     Dates: start: 201005
  2. COPAXONE [Concomitant]
  3. KEPPRA [Concomitant]
     Indication: DIZZINESS
  4. SYNTHROID [Concomitant]
  5. RITALIN [Concomitant]
  6. VALIUM [Concomitant]
  7. CELEXA [Concomitant]

REACTIONS (2)
  - Convulsion [Unknown]
  - Multiple sclerosis relapse [Unknown]
